FAERS Safety Report 12353007 (Version 3)
Quarter: 2017Q4

REPORT INFORMATION
  Report Type: Spontaneous
  Country: CH (occurrence: CH)
  Receive Date: 20160510
  Receipt Date: 20171016
  Transmission Date: 20180320
  Serious: Yes (Life-Threatening, Hospitalization, Other)
  Sender: FDA-Public Use
  Company Number: CH-TEVA-658721ISR

PATIENT
  Age: 57 Year
  Sex: Male

DRUGS (13)
  1. PROPRANOLOL [Concomitant]
     Active Substance: PROPRANOLOL HYDROCHLORIDE
  2. LOSARTAN. [Suspect]
     Active Substance: LOSARTAN
  3. CITALOPRAM [Interacting]
     Active Substance: CITALOPRAM HYDROBROMIDE
  4. METFORMIN [Concomitant]
     Active Substance: METFORMIN HYDROCHLORIDE
  5. MEFENAMIC ACID. [Suspect]
     Active Substance: MEFENAMIC ACID
  6. ESOMEPRAZOLE [Concomitant]
     Active Substance: ESOMEPRAZOLE
  7. CLONAZEPAM. [Concomitant]
     Active Substance: CLONAZEPAM
  8. HYDROCHLOROTHIAZIDE. [Suspect]
     Active Substance: HYDROCHLOROTHIAZIDE
  9. TOPIRAMATE. [Interacting]
     Active Substance: TOPIRAMATE
     Dosage: 25 MILLIGRAM DAILY;
  10. IBUPROFEN. [Suspect]
     Active Substance: IBUPROFEN
  11. TORASEMIDE [Suspect]
     Active Substance: TORSEMIDE
  12. TOPIRAMATE. [Suspect]
     Active Substance: TOPIRAMATE
     Indication: ESSENTIAL TREMOR
     Dosage: 100 MILLIGRAM DAILY;
  13. ALLOPURINOL. [Concomitant]
     Active Substance: ALLOPURINOL

REACTIONS (4)
  - Anhidrosis [Unknown]
  - Heat stroke [Recovered/Resolved]
  - Drug interaction [Unknown]
  - Acute kidney injury [Unknown]
